FAERS Safety Report 6206065-9 (Version None)
Quarter: 2009Q2

REPORT INFORMATION
  Report Type: 
  Country: None (occurrence: None)
  Receive Date: 20090528
  Receipt Date: 20090521
  Transmission Date: 20091009
  Serious: Yes (Hospitalization)
  Sender: FDA-Public Use
  Company Number: JP-BRISTOL-MYERS SQUIBB COMPANY-14577712

PATIENT
  Age: 53 Year
  Sex: Male
  Weight: 47 kg

DRUGS (3)
  1. ERBITUX [Suspect]
     Indication: COLON CANCER
     Route: 042
     Dates: start: 20090217, end: 20090217
  2. DIPHENHYDRAMINE HCL [Concomitant]
     Indication: PREMEDICATION
     Dosage: TAB
     Route: 048
     Dates: start: 20090217, end: 20090217
  3. DECADRON [Concomitant]
     Indication: PREMEDICATION
     Route: 042
     Dates: start: 20090217, end: 20090217

REACTIONS (2)
  - ACNE [None]
  - HAEMORRHAGE SUBCUTANEOUS [None]
